FAERS Safety Report 6196815-2 (Version None)
Quarter: 2009Q2

REPORT INFORMATION
  Report Type: 
  Country: None (occurrence: None)
  Receive Date: 20090518
  Receipt Date: 20090504
  Transmission Date: 20091009
  Serious: Yes (Other)
  Sender: FDA-Public Use
  Company Number: MPS1-1000169

PATIENT
  Age: 9 Year

DRUGS (1)
  1. ALDURAZYME [Suspect]
     Indication: MUCOPOLYSACCHARIDOSIS I
     Dosage: 11.6 MG, 1X/W, INTRAVENOUS
     Route: 042
     Dates: start: 20061017

REACTIONS (6)
  - CYANOSIS [None]
  - DYSPNOEA [None]
  - FACE OEDEMA [None]
  - OXYGEN SATURATION DECREASED [None]
  - RASH [None]
  - TONGUE OEDEMA [None]
